FAERS Safety Report 6442341-2 (Version None)
Quarter: 2009Q4

REPORT INFORMATION
  Report Type: 
  Country: None (occurrence: None)
  Receive Date: 20091112
  Receipt Date: 20091102
  Transmission Date: 20100525
  Serious: Yes (Disabling)
  Sender: FDA-Public Use
  Company Number: ADR46592009

PATIENT
  Age: 61 Year
  Sex: Male

DRUGS (1)
  1. SIMVASTATIN [Suspect]
     Indication: HYPERCHOLESTEROLAEMIA
     Dosage: 20 MG ORAL
     Route: 048
     Dates: start: 20051010, end: 20060702

REACTIONS (2)
  - APHASIA [None]
  - CONFUSIONAL STATE [None]
